FAERS Safety Report 14914203 (Version 3)
Quarter: 2018Q3

REPORT INFORMATION
  Report Type: Report from Study
  Country: US (occurrence: US)
  Receive Date: 20180518
  Receipt Date: 20180801
  Transmission Date: 20181010
  Serious: Yes (Other)
  Sender: FDA-Public Use
  Company Number: US-AMGEN-USASL2018065955

PATIENT
  Age: 64 Year
  Sex: Female

DRUGS (2)
  1. ENBREL [Suspect]
     Active Substance: ETANERCEPT
     Indication: RHEUMATOID ARTHRITIS
     Dosage: 50 MG, QWK
     Route: 058
  2. ENBREL [Suspect]
     Active Substance: ETANERCEPT
     Dosage: 50 MG, QWK
     Route: 065

REACTIONS (7)
  - Pain in extremity [Unknown]
  - Scoliosis [Unknown]
  - Intervertebral disc degeneration [Unknown]
  - Spondylitis [Unknown]
  - Spinal column stenosis [Unknown]
  - Herpes zoster [Recovered/Resolved]
  - Injection site bruising [Recovering/Resolving]

NARRATIVE: CASE EVENT DATE: 2018
